FAERS Safety Report 12383476 (Version 2)
Quarter: 2016Q2

REPORT INFORMATION
  Report Type: Spontaneous
  Country: US (occurrence: US)
  Receive Date: 20160518
  Receipt Date: 20160527
  Transmission Date: 20160815
  Serious: Yes (Death)
  Sender: FDA-Public Use
  Company Number: US-RELYPSA-RLY2016000722

PATIENT

DRUGS (19)
  1. ARANESP [Concomitant]
     Active Substance: DARBEPOETIN ALFA
  2. TORSEMIDE. [Concomitant]
     Active Substance: TORSEMIDE
     Dosage: 100 MG, QD
     Route: 048
     Dates: start: 20140305
  3. SEVELAMER CARBONATE. [Concomitant]
     Active Substance: SEVELAMER CARBONATE
  4. MINOXIDIL. [Concomitant]
     Active Substance: MINOXIDIL
     Dosage: 2.5 MG, BID
     Route: 048
     Dates: start: 20150220
  5. SENSIPAR [Concomitant]
     Active Substance: CINACALCET HYDROCHLORIDE
     Dosage: 90 MG, QD
     Route: 048
     Dates: start: 20150423
  6. LACTULOSE. [Concomitant]
     Active Substance: LACTULOSE
     Dosage: 30 ML, UNK
     Route: 048
     Dates: start: 20150804
  7. ADDERALL [Concomitant]
     Active Substance: AMPHETAMINE ASPARTATE\AMPHETAMINE SULFATE\DEXTROAMPHETAMINE SACCHARATE\DEXTROAMPHETAMINE SULFATE
  8. VELTASSA [Suspect]
     Active Substance: PATIROMER
     Indication: HYPERKALAEMIA
     Dosage: 8.4 G, QD
     Route: 048
     Dates: start: 20160227
  9. ENGERIX-B [Concomitant]
     Active Substance: HEPATITIS B VIRUS SUBTYPE ADW2 HBSAG SURFACE PROTEIN ANTIGEN
  10. CLONIDINE HCL [Concomitant]
     Active Substance: CLONIDINE HYDROCHLORIDE
     Dosage: 0.3 MG, TID
     Route: 048
     Dates: start: 20150304
  11. TRAMADOL HCL [Concomitant]
     Active Substance: TRAMADOL HYDROCHLORIDE
     Dosage: 50 MG, UNK
     Route: 048
     Dates: start: 20150810
  12. CLINDAMYCIN HCL [Concomitant]
     Active Substance: CLINDAMYCIN HYDROCHLORIDE
     Dosage: 300 MG, Q 8 HOURS
     Route: 048
     Dates: start: 20150810
  13. ZOLPIDEM TARTATE [Concomitant]
     Active Substance: ZOLPIDEM TARTRATE
     Dosage: 5 MG, H.S.
     Route: 048
     Dates: start: 20150126, end: 20151030
  14. VITAMIN B [Concomitant]
     Active Substance: VITAMIN B
     Dosage: 1 TABLET, QD
     Route: 048
     Dates: start: 20130115
  15. KAYEXALATE [Concomitant]
     Active Substance: SODIUM POLYSTYRENE SULFONATE
     Dosage: 30 G, PRN
     Route: 048
     Dates: start: 20150810, end: 201602
  16. GABAPENTIN. [Concomitant]
     Active Substance: GABAPENTIN
  17. METOPROLOL TARTRATE. [Concomitant]
     Active Substance: METOPROLOL TARTRATE
     Dosage: 100 MG, BID
     Route: 048
     Dates: start: 20150304
  18. CLONIDINE HCL [Concomitant]
     Active Substance: CLONIDINE HYDROCHLORIDE
     Dosage: 0.1 MG, Q 8 HOURS
     Route: 048
     Dates: start: 20150306
  19. FOSRENOL [Concomitant]
     Active Substance: LANTHANUM CARBONATE
     Dosage: 1000 MG, UNK
     Route: 048
     Dates: start: 20150831

REACTIONS (1)
  - Septic shock [Fatal]
